FAERS Safety Report 6626060-5 (Version None)
Quarter: 2010Q1

REPORT INFORMATION
  Report Type: 
  Country: None (occurrence: None)
  Receive Date: 20100310
  Receipt Date: 20100302
  Transmission Date: 20100710
  Serious: Yes (Other)
  Sender: FDA-Public Use
  Company Number: A0840358A

PATIENT
  Age: 69 Year
  Sex: Female

DRUGS (15)
  1. COREG [Suspect]
     Indication: DRUG USE FOR UNKNOWN INDICATION
     Dosage: 6.25MG TWICE PER DAY
     Route: 048
     Dates: start: 20091014
  2. MULTAQ [Suspect]
     Indication: ATRIAL FIBRILLATION
     Dosage: 400MG TWICE PER DAY
     Route: 048
     Dates: start: 20091014
  3. BENICAR [Suspect]
     Indication: DRUG USE FOR UNKNOWN INDICATION
     Dosage: 20MG PER DAY
     Route: 048
     Dates: start: 20091014
  4. CARDIZEM [Suspect]
     Indication: DRUG USE FOR UNKNOWN INDICATION
     Dosage: 240MG PER DAY
     Route: 048
     Dates: start: 20091014
  5. TRIAMTERENE [Concomitant]
  6. MAXZIDE [Concomitant]
  7. COUMADIN [Concomitant]
  8. MAGN. OXIDE [Concomitant]
  9. GLUCOSAMINE [Concomitant]
  10. CRESTOR [Concomitant]
  11. ACTOS [Concomitant]
  12. INSULIN [Concomitant]
  13. COENZYME Q10 [Concomitant]
  14. GLYBURIDE [Concomitant]
  15. ASPIRIN [Concomitant]

REACTIONS (13)
  - ATRIAL FIBRILLATION [None]
  - BLOOD POTASSIUM ABNORMAL [None]
  - BRADYCARDIA [None]
  - DIARRHOEA [None]
  - DYSPNOEA [None]
  - FATIGUE [None]
  - INSOMNIA [None]
  - MALAISE [None]
  - OEDEMA PERIPHERAL [None]
  - PAIN [None]
  - RHINORRHOEA [None]
  - WEIGHT INCREASED [None]
  - WHEEZING [None]
